FAERS Safety Report 22611630 (Version 1)
Quarter: 2023Q2

REPORT INFORMATION
  Report Type: Spontaneous
  Country: US (occurrence: US)
  Receive Date: 20230616
  Receipt Date: 20230616
  Transmission Date: 20230721
  Serious: Yes (Hospitalization)
  Sender: FDA-Public Use
  Company Number: US-PHARMING-PHAUS2023000428

PATIENT

DRUGS (1)
  1. RUCONEST [Suspect]
     Active Substance: HUMAN C1-ESTERASE INHIBITOR
     Indication: Hereditary angioedema
     Dosage: 2100 IU, TWO TIMES WEEKLY AND AS NEEDED
     Route: 042
     Dates: start: 20230523

REACTIONS (3)
  - Staphylococcal infection [Unknown]
  - Body temperature increased [Unknown]
  - Intentional product use issue [Unknown]
